FAERS Safety Report 21232857 (Version 1)
Quarter: 2022Q3

REPORT INFORMATION
  Report Type: Spontaneous
  Country: GB (occurrence: GB)
  Receive Date: 20220819
  Receipt Date: 20220819
  Transmission Date: 20221027
  Serious: Yes (Hospitalization)
  Sender: FDA-Public Use
  Company Number: GB-RP-023499

PATIENT
  Age: 72 Year
  Sex: Male

DRUGS (1)
  1. WARFARIN [Suspect]
     Active Substance: WARFARIN
     Indication: Atrial fibrillation
     Route: 065

REACTIONS (9)
  - Paraesthesia [Unknown]
  - Brown-Sequard syndrome [Unknown]
  - Hypoaesthesia [Unknown]
  - Gait inability [Unknown]
  - Hyporeflexia [Unknown]
  - Paraparesis [Unknown]
  - Spinal cord haematoma [Unknown]
  - Extensor plantar response [Unknown]
  - Urinary incontinence [Unknown]
